FAERS Safety Report 10068208 (Version 1)
Quarter: 2014Q2

REPORT INFORMATION
  Report Type: Spontaneous
  Country: US (occurrence: US)
  Receive Date: 20140409
  Receipt Date: 20140409
  Transmission Date: 20141212
  Serious: No
  Sender: FDA-Public Use
  Company Number: US-PFIZER INC-2014096641

PATIENT
  Age: 51 Year
  Sex: Male
  Weight: 78.91 kg

DRUGS (2)
  1. NORVASC [Suspect]
     Indication: HYPERTENSION
     Dosage: 10 MG, DAILY
  2. NORVASC [Suspect]
     Dosage: 5 MG, DAILY
     Dates: start: 20140331

REACTIONS (5)
  - Blood pressure inadequately controlled [Unknown]
  - Heart rate decreased [Unknown]
  - Dizziness [Unknown]
  - Heart rate increased [Unknown]
  - Headache [Unknown]
